FAERS Safety Report 13566059 (Version 1)
Quarter: 2017Q2

REPORT INFORMATION
  Report Type: Spontaneous
  Country: GB (occurrence: GB)
  Receive Date: 20170520
  Receipt Date: 20170520
  Transmission Date: 20170830
  Serious: Yes (Hospitalization)
  Sender: FDA-Public Use
  Company Number: GB-TEVA-767716ACC

PATIENT
  Age: 76 Year
  Sex: Male
  Weight: 116 kg

DRUGS (15)
  1. OFLOXACIN. [Suspect]
     Active Substance: OFLOXACIN
     Indication: URINARY TRACT INFECTION
     Dosage: 400 MILLIGRAM DAILY; FOR 7 DAYS. ONLY 2 DOSES TAKEN (ONE IN THE MORNING AND ONE IN THE EVENING).
     Route: 048
     Dates: start: 20170422, end: 20170423
  2. PRAVASTATIN. [Concomitant]
     Active Substance: PRAVASTATIN
     Dosage: 40 MILLIGRAM DAILY; NIGHT.
     Route: 048
  3. SILDENAFIL. [Concomitant]
     Active Substance: SILDENAFIL
     Dosage: AS DIRECTED. MDU
     Route: 048
  4. FUROSEMIDE. [Concomitant]
     Active Substance: FUROSEMIDE
     Dosage: 40 MILLIGRAM DAILY; MORNING. HELD FOR 3 DAYS FROM 23/4/17 DUE TO ACUTE KIDNEY INJURY.
     Route: 048
  5. LACTULOSE. [Concomitant]
     Active Substance: LACTULOSE
     Dosage: TWICE DAILY.
     Route: 048
  6. BENDROFLUMETHIAZIDE [Concomitant]
     Active Substance: BENDROFLUMETHIAZIDE
     Dosage: 2.5 MILLIGRAM DAILY; MORNING. HELD FOR 3 DAYS FROM 23/4/17 DUE TO ACUTE KIDNEY INJURY.
     Route: 048
  7. RAMIPRIL. [Concomitant]
     Active Substance: RAMIPRIL
     Dosage: 10 MILLIGRAM DAILY; MORNING. HELD FOR 3 DAYS FROM 23/4/17 DUE TO ACUTE KIDNEY INJURY.
     Route: 048
  8. ADALAT CC [Concomitant]
     Active Substance: NIFEDIPINE
     Dosage: 30 MILLIGRAM DAILY;
     Route: 048
  9. TAMSULOSIN [Concomitant]
     Active Substance: TAMSULOSIN
     Dosage: 400 MICROGRAM DAILY; MORNING.
     Route: 048
  10. COCODAMOL [Concomitant]
     Active Substance: ACETAMINOPHEN\CODEINE PHOSPHATE
     Dosage: 30/500MG 1-2 TABLETS FOUR TIME A DAY WHEN REQUIRED.
     Route: 048
  11. FINASTERIDE. [Concomitant]
     Active Substance: FINASTERIDE
     Dosage: 5 MILLIGRAM DAILY;
     Route: 048
  12. DICLOFENAC [Concomitant]
     Active Substance: DICLOFENAC
     Dosage: APPLY TWICE DAILY.
     Route: 061
  13. BISOPROLOL [Concomitant]
     Active Substance: BISOPROLOL
     Dosage: 1.25 MILLIGRAM DAILY; MORNING.
     Route: 048
  14. PREGABALIN. [Concomitant]
     Active Substance: PREGABALIN
     Dosage: 150 MILLIGRAM DAILY;
     Route: 048
  15. XARELTO [Concomitant]
     Active Substance: RIVAROXABAN
     Dosage: 20 MILLIGRAM DAILY; AT 6PM.
     Route: 048

REACTIONS (5)
  - Peripheral swelling [Recovering/Resolving]
  - Rash erythematous [Recovering/Resolving]
  - Acute kidney injury [Unknown]
  - Pain in extremity [Recovering/Resolving]
  - Pruritus [Unknown]

NARRATIVE: CASE EVENT DATE: 20170423
